FAERS Safety Report 9533019 (Version 1)
Quarter: 2013Q3

REPORT INFORMATION
  Report Type: Spontaneous
  Country: US (occurrence: None)
  Receive Date: 20130916
  Receipt Date: 20130916
  Transmission Date: 20140515
  Serious: Yes (Other)
  Sender: FDA-Public Use
  Company Number: AUR-APL-2013-07704

PATIENT
  Age: 60 Year
  Sex: Female
  Weight: 140 kg

DRUGS (5)
  1. VENLAFAXINE [Suspect]
     Indication: MAJOR DEPRESSION
     Dosage: 250 MG (250 MG, 1 IN 1 D), UNKNOWN
  2. EFFEXOR [Suspect]
  3. LYRICA (PREGABALIN) [Concomitant]
  4. PERCOCET (TYLOX / 00446701) [Concomitant]
  5. OXYCONTIN (OXYCODONE HYDROCHLORIDE) [Concomitant]

REACTIONS (8)
  - Memory impairment [None]
  - Blood oestrogen increased [None]
  - Thyroid disorder [None]
  - Progesterone decreased [None]
  - Blood testosterone decreased [None]
  - Feeling abnormal [None]
  - Quality of life decreased [None]
  - Drug ineffective [None]
